FAERS Safety Report 12301834 (Version 4)
Quarter: 2016Q3

REPORT INFORMATION
  Report Type: Spontaneous
  Country: CO (occurrence: CO)
  Receive Date: 20160425
  Receipt Date: 20160914
  Transmission Date: 20161109
  Serious: Yes (Hospitalization, Other)
  Sender: FDA-Public Use
  Company Number: CO-PFIZER INC-2016229335

PATIENT
  Age: 60 Year
  Sex: Female

DRUGS (4)
  1. XELJANZ [Suspect]
     Active Substance: TOFACITINIB CITRATE
     Indication: RHEUMATOID ARTHRITIS
     Dosage: 5 MG, 2X/DAY
     Route: 048
     Dates: start: 201510
  2. ARAVA [Concomitant]
     Active Substance: LEFLUNOMIDE
     Dosage: UNK
     Dates: start: 2011
  3. XELJANZ [Suspect]
     Active Substance: TOFACITINIB CITRATE
     Dosage: 5 MG, 2X/DAY
     Route: 048
     Dates: start: 20160806
  4. ETANERCEPT [Concomitant]
     Active Substance: ETANERCEPT

REACTIONS (8)
  - Allergic bronchitis [Recovered/Resolved]
  - Aphonia [Unknown]
  - Influenza [Not Recovered/Not Resolved]
  - Endometrial thickening [Recovering/Resolving]
  - Chest discomfort [Not Recovered/Not Resolved]
  - Postmenopausal haemorrhage [Recovered/Resolved]
  - Cough [Not Recovered/Not Resolved]
  - Malaise [Not Recovered/Not Resolved]

NARRATIVE: CASE EVENT DATE: 201512
